FAERS Safety Report 20706298 (Version 1)
Quarter: 2022Q2

REPORT INFORMATION
  Report Type: Spontaneous
  Country: US (occurrence: US)
  Receive Date: 20220413
  Receipt Date: 20220413
  Transmission Date: 20220721
  Serious: Yes (Other)
  Sender: FDA-Public Use
  Company Number: US-AMERICAN REGENT INC-2022001002

PATIENT
  Age: 22 Month
  Sex: Male

DRUGS (1)
  1. BUSULFAN [Suspect]
     Active Substance: BUSULFAN
     Indication: Neuroblastoma
     Dosage: 150 MG TOTAL DOSE (6 ROUNDS OF CHEMOTHERAPY)
     Route: 065

REACTIONS (2)
  - Interstitial lung disease [Unknown]
  - Product use in unapproved indication [Unknown]
